FAERS Safety Report 6409722-4 (Version None)
Quarter: 2009Q4

REPORT INFORMATION
  Report Type: 
  Country: None (occurrence: None)
  Receive Date: 20091022
  Receipt Date: 20091015
  Transmission Date: 20100525
  Serious: Yes (Death)
  Sender: FDA-Public Use
  Company Number: NL-BAYER-01/03422-CDS

PATIENT
  Age: 17 Year
  Sex: Female

DRUGS (1)
  1. YASMIN [Suspect]
     Indication: ORAL CONTRACEPTION
     Dosage: 1 TABLET
     Route: 048
     Dates: start: 20010425

REACTIONS (4)
  - CIRCULATORY COLLAPSE [None]
  - DYSPNOEA [None]
  - PULMONARY EMBOLISM [None]
  - RESPIRATORY RATE INCREASED [None]
